FAERS Safety Report 7430261-6 (Version None)
Quarter: 2011Q2

REPORT INFORMATION
  Report Type: 
  Country: None (occurrence: None)
  Receive Date: 20110421
  Receipt Date: 20100331
  Transmission Date: 20111010
  Serious: No
  Sender: FDA-Public Use
  Company Number: US-ASTRAZENECA-2010SE14261

PATIENT
  Age: 42 Year
  Sex: Female
  Weight: 93 kg

DRUGS (7)
  1. TOPROL-XL [Suspect]
     Route: 048
  2. SEROQUEL [Suspect]
     Indication: BIPOLAR DISORDER
     Route: 048
  3. SEROQUEL [Suspect]
     Indication: ANXIETY
     Route: 048
  4. SEROQUEL [Suspect]
     Indication: BORDERLINE PERSONALITY DISORDER
     Route: 048
  5. SEROQUEL [Suspect]
     Indication: DEPRESSION
     Route: 048
  6. BIASTALIC [Concomitant]
     Indication: BLOOD PRESSURE
  7. BIASTALIC [Concomitant]
     Indication: ANXIETY

REACTIONS (7)
  - INSOMNIA [None]
  - IMPAIRED WORK ABILITY [None]
  - AGITATION [None]
  - WEIGHT DECREASED [None]
  - DRUG DOSE OMISSION [None]
  - MOOD SWINGS [None]
  - CRYING [None]
